FAERS Safety Report 20456758 (Version 2)
Quarter: 2022Q3

REPORT INFORMATION
  Report Type: Spontaneous
  Country: US (occurrence: US)
  Receive Date: 20220210
  Receipt Date: 20220822
  Transmission Date: 20221026
  Serious: Yes (Other)
  Sender: FDA-Public Use
  Company Number: US-GILEAD-2022-0569475

PATIENT
  Sex: Female
  Weight: 108.84 kg

DRUGS (13)
  1. ATRIPLA [Suspect]
     Active Substance: EFAVIRENZ\EMTRICITABINE\TENOFOVIR DISOPROXIL FUMARATE
     Indication: HIV infection
     Dosage: UNK
     Route: 048
     Dates: start: 2006
  2. ATRIPLA [Suspect]
     Active Substance: EFAVIRENZ\EMTRICITABINE\TENOFOVIR DISOPROXIL FUMARATE
     Dosage: UNK
     Route: 048
     Dates: start: 200801, end: 201608
  3. DESCOVY [Concomitant]
     Active Substance: EMTRICITABINE\TENOFOVIR ALAFENAMIDE FUMARATE
  4. ODEFSEY [Concomitant]
     Active Substance: EMTRICITABINE\RILPIVIRINE HYDROCHLORIDE\TENOFOVIR ALAFENAMIDE FUMARATE
  5. SUSTIVA [Concomitant]
     Active Substance: EFAVIRENZ
  6. TIVICAY [Concomitant]
     Active Substance: DOLUTEGRAVIR SODIUM
  7. FUROSEMIDE [Concomitant]
     Active Substance: FUROSEMIDE
  8. TOPROL XL [Concomitant]
     Active Substance: METOPROLOL SUCCINATE
  9. CALCIUM\CHOLECALCIFEROL [Concomitant]
     Active Substance: CALCIUM\CHOLECALCIFEROL
  10. OYSTERCAL D [Concomitant]
  11. SAVAYSA [Concomitant]
     Active Substance: EDOXABAN TOSYLATE
  12. SIMVASTATIN [Concomitant]
     Active Substance: SIMVASTATIN
  13. CALCIUM 600+D [CALCIUM;COLECALCIFEROL] [Concomitant]

REACTIONS (9)
  - Osteoporosis [Not Recovered/Not Resolved]
  - Bone demineralisation [Unknown]
  - Emotional distress [Not Recovered/Not Resolved]
  - Anhedonia [Not Recovered/Not Resolved]
  - Skeletal injury [Unknown]
  - Mobility decreased [Not Recovered/Not Resolved]
  - Bone density decreased [Not Recovered/Not Resolved]
  - Anxiety [Not Recovered/Not Resolved]
  - Pain [Not Recovered/Not Resolved]

NARRATIVE: CASE EVENT DATE: 20150101
